FAERS Safety Report 13098278 (Version 1)
Quarter: 2017Q1

REPORT INFORMATION
  Report Type: Spontaneous
  Country: US (occurrence: US)
  Receive Date: 20170109
  Receipt Date: 20170109
  Transmission Date: 20170428
  Serious: Yes (Death, Hospitalization, Other)
  Sender: FDA-Public Use
  Company Number: US-ASTELLAS-2017US000550

PATIENT
  Age: 50 Year
  Sex: Male

DRUGS (3)
  1. TACROLIMUS. [Suspect]
     Active Substance: TACROLIMUS
     Indication: RENAL TRANSPLANT
     Dosage: UNK UNK, UNKNOWN FREQ.
     Route: 065
  2. MYCOPHENOLATE [Concomitant]
     Active Substance: MYCOPHENOLIC ACID
     Indication: RENAL TRANSPLANT
     Route: 048
  3. THYMOGLOBULIN [Concomitant]
     Active Substance: LAPINE T-LYMPHOCYTE IMMUNE GLOBULIN
     Indication: IMMUNOSUPPRESSION
     Dosage: 1.5 MG/KG, UNKNOWN FREQ. (MAX DOSE 150 MG) ON POSTOPERATIVE DAY (POD) 1, 2, AND 3
     Route: 065

REACTIONS (12)
  - Coagulopathy [Unknown]
  - Hypotension [Unknown]
  - Blood potassium increased [Not Recovered/Not Resolved]
  - Acute hepatic failure [Unknown]
  - Renal tubular necrosis [Unknown]
  - Pneumoperitoneum [Unknown]
  - Haemolysis [Unknown]
  - Multiple organ dysfunction syndrome [Fatal]
  - Focal segmental glomerulosclerosis [Unknown]
  - Renal artery occlusion [Unknown]
  - Clostridial infection [Unknown]
  - Clostridial sepsis [Unknown]
